FAERS Safety Report 7207010-X (Version None)
Quarter: 2011Q1

REPORT INFORMATION
  Report Type: 
  Country: None (occurrence: None)
  Receive Date: 20110103
  Receipt Date: 20101222
  Transmission Date: 20110831
  Serious: Yes (Hospitalization)
  Sender: FDA-Public Use
  Company Number: B0597499A

PATIENT
  Sex: Male
  Weight: 55 kg

DRUGS (1)
  1. PAZOPANIB [Suspect]
     Indication: SARCOMA
     Dosage: 800MG PER DAY
     Route: 048
     Dates: start: 20090820

REACTIONS (5)
  - COLITIS [None]
  - PERFORMANCE STATUS DECREASED [None]
  - DIARRHOEA [None]
  - ABDOMINAL RIGIDITY [None]
  - DEHYDRATION [None]
